FAERS Safety Report 9832330 (Version 1)
Quarter: 2014Q1

REPORT INFORMATION
  Report Type: Spontaneous
  Country: US (occurrence: US)
  Receive Date: 20140121
  Receipt Date: 20140121
  Transmission Date: 20141002
  Serious: No
  Sender: FDA-Public Use
  Company Number: US-PFIZER INC-2014017487

PATIENT
  Age: 31 Year
  Sex: Female
  Weight: 51.25 kg

DRUGS (6)
  1. XALKORI [Suspect]
     Indication: LUNG CANCER METASTATIC
     Dosage: 250 MG, 2X/DAY
     Route: 048
  2. MEGESTROL ACETATE [Concomitant]
     Dosage: 20 MG, UNK
  3. DRONABINOL [Concomitant]
     Dosage: 2.5 MG, UNK
  4. VITAMIN D [Concomitant]
     Dosage: 400 IU, UNK
  5. KEPPRA [Concomitant]
     Dosage: 250 MG, UNK
  6. TYLENOL [Concomitant]
     Dosage: 500 MG, UNK

REACTIONS (2)
  - Local swelling [Unknown]
  - Decreased appetite [Unknown]
